FAERS Safety Report 21081631 (Version 1)
Quarter: 2022Q3

REPORT INFORMATION
  Report Type: Spontaneous
  Country: US (occurrence: None)
  Receive Date: 20220714
  Receipt Date: 20220714
  Transmission Date: 20221027
  Serious: Yes (Hospitalization)
  Sender: FDA-Public Use
  Company Number: None

PATIENT
  Sex: Female
  Weight: 81.9 kg

DRUGS (2)
  1. CARBOPLATIN [Suspect]
     Active Substance: CARBOPLATIN
     Dates: end: 20220624
  2. TAXOL [Suspect]
     Active Substance: PACLITAXEL
     Dates: end: 20220624

REACTIONS (6)
  - Nausea [None]
  - Vomiting [None]
  - Blood creatinine increased [None]
  - Blood urea increased [None]
  - Feeding disorder [None]
  - Fluid intake reduced [None]

NARRATIVE: CASE EVENT DATE: 20220708
